FAERS Safety Report 11241263 (Version 1)
Quarter: 2015Q3

REPORT INFORMATION
  Report Type: Spontaneous
  Country: FR (occurrence: FR)
  Receive Date: 20150706
  Receipt Date: 20150706
  Transmission Date: 20151125
  Serious: Yes (Hospitalization)
  Sender: FDA-Public Use
  Company Number: FR-SA-2015SA093081

PATIENT
  Age: 82 Year
  Sex: Female
  Weight: 78 kg

DRUGS (8)
  1. CORDARONE [Concomitant]
     Active Substance: AMIODARONE HYDROCHLORIDE
     Dosage: SCORED TABLET
     Route: 048
     Dates: start: 201501
  2. PLAVIX [Suspect]
     Active Substance: CLOPIDOGREL BISULFATE
     Route: 048
     Dates: start: 201501
  3. PERINDOPRIL [Concomitant]
     Active Substance: PERINDOPRIL
     Route: 048
  4. PREVISCAN [Suspect]
     Active Substance: FLUINDIONE
     Dosage: FORM: COMPRESSED DRYABLE, SCORED TABLET?STRENGTH: 20MG
     Route: 048
     Dates: start: 201501, end: 20150306
  5. TAHOR [Concomitant]
     Active Substance: ATORVASTATIN CALCIUM
     Route: 048
  6. BISOPROLOL [Concomitant]
     Active Substance: BISOPROLOL
     Route: 048
  7. KARDEGIC [Suspect]
     Active Substance: ASPIRIN LYSINE
     Route: 048
     Dates: start: 201501
  8. LERCAN [Concomitant]
     Active Substance: LERCANIDIPINE
     Route: 048

REACTIONS (8)
  - Anaemia [Recovered/Resolved]
  - Cardiac failure [Recovered/Resolved]
  - Gastric ulcer [Recovered/Resolved]
  - Oesophagitis [Recovered/Resolved]
  - Periorbital haematoma [Unknown]
  - Dyspnoea exertional [Recovered/Resolved]
  - Melaena [Recovered/Resolved]
  - International normalised ratio increased [Recovered/Resolved]

NARRATIVE: CASE EVENT DATE: 201503
